FAERS Safety Report 18793950 (Version 1)
Quarter: 2021Q1

REPORT INFORMATION
  Report Type: Other
  Country: ES (occurrence: ES)
  Receive Date: 20210127
  Receipt Date: 20210127
  Transmission Date: 20210419
  Serious: Yes (Hospitalization, Other)
  Sender: FDA-Public Use
  Company Number: ES-ROCHE-2753908

PATIENT

DRUGS (3)
  1. ATEZOLIZUMAB. [Suspect]
     Active Substance: ATEZOLIZUMAB
     Indication: NON-SMALL CELL LUNG CANCER
     Route: 065
  2. PEMBROLIZUMAB. [Suspect]
     Active Substance: PEMBROLIZUMAB
     Indication: NON-SMALL CELL LUNG CANCER
     Route: 065
  3. NIVOLUMAB [Suspect]
     Active Substance: NIVOLUMAB
     Indication: NON-SMALL CELL LUNG CANCER
     Route: 065

REACTIONS (18)
  - Headache [Unknown]
  - Hypersensitivity [Unknown]
  - Hypothyroidism [Unknown]
  - Serositis [Unknown]
  - Nephritis [Unknown]
  - Arthralgia [Unknown]
  - Dyspnoea [Unknown]
  - Tinnitus [Unknown]
  - Oedema [Unknown]
  - Decreased appetite [Unknown]
  - Nausea [Unknown]
  - Paraesthesia [Unknown]
  - Liver disorder [Unknown]
  - Pyrexia [Unknown]
  - Asthenia [Unknown]
  - Diarrhoea [Unknown]
  - Skin reaction [Unknown]
  - Cough [Unknown]
